FAERS Safety Report 9263198 (Version 1)
Quarter: 2013Q2

REPORT INFORMATION
  Report Type: Spontaneous
  Country: US (occurrence: None)
  Receive Date: 20130426
  Receipt Date: 20130426
  Transmission Date: 20140414
  Serious: No
  Sender: FDA-Public Use
  Company Number: None

PATIENT
  Age: 23 Year
  Sex: Male
  Weight: 68.04 kg

DRUGS (2)
  1. CITALOPRAM [Suspect]
     Indication: ANXIETY
     Dates: start: 20130417, end: 20130424
  2. CITALOPRAM [Suspect]
     Indication: AFFECTIVE DISORDER
     Dates: start: 20130417, end: 20130424

REACTIONS (5)
  - Drug ineffective [None]
  - Aggression [None]
  - Abdominal discomfort [None]
  - Dyspepsia [None]
  - Constipation [None]
